FAERS Safety Report 9347869 (Version 1)
Quarter: 2013Q2

REPORT INFORMATION
  Report Type: Spontaneous
  Country: US (occurrence: None)
  Receive Date: 20130612
  Receipt Date: 20130612
  Transmission Date: 20140414
  Serious: Yes (Other)
  Sender: FDA-Public Use
  Company Number: None

PATIENT
  Age: 28 Year
  Sex: Female
  Weight: 54.43 kg

DRUGS (3)
  1. BUPROPION HYDROCHLORIDE XL [Suspect]
     Indication: DEPRESSION
     Dosage: 1 TABLET
     Route: 048
     Dates: start: 201212
  2. BUPROPION HYDROCHLORIDE XL [Suspect]
     Dosage: 1 TABLET
     Route: 048
     Dates: start: 201212
  3. BUPROPION HYDROCHLORIDE [Suspect]
     Indication: DEPRESSION
     Dosage: 1 TABLET
     Route: 048

REACTIONS (3)
  - Suicidal ideation [None]
  - Anxiety [None]
  - Hallucination, visual [None]
